FAERS Safety Report 17505880 (Version 1)
Quarter: 2020Q1

REPORT INFORMATION
  Report Type: Spontaneous
  Country: US (occurrence: US)
  Receive Date: 20200305
  Receipt Date: 20200305
  Transmission Date: 20200409
  Serious: No
  Sender: FDA-Public Use
  Company Number: US-ROCHE-2367178

PATIENT
  Sex: Female

DRUGS (2)
  1. XOLAIR [Suspect]
     Active Substance: OMALIZUMAB
     Indication: IDIOPATHIC URTICARIA
     Dosage: ONGOING
     Route: 065
     Dates: start: 20190508
  2. XOLAIR [Suspect]
     Active Substance: OMALIZUMAB
     Dosage: ONGOING: YES 150 MG PREFILLED SYRINGE
     Route: 065
     Dates: start: 20190507

REACTIONS (3)
  - Fatigue [Unknown]
  - Asthenia [Unknown]
  - Headache [Unknown]
